FAERS Safety Report 8084834-0 (Version None)
Quarter: 2012Q1

REPORT INFORMATION
  Report Type: 
  Country: None (occurrence: None)
  Receive Date: 20120128
  Receipt Date: 20110322
  Transmission Date: 20120608
  Serious: Yes (Other)
  Sender: FDA-Public Use
  Company Number: US-ABBOTT-11P-163-0713736-00

PATIENT
  Sex: Male

DRUGS (6)
  1. GLUCOPHAGE [Concomitant]
     Indication: DIABETES MELLITUS
  2. VITAMIN B1 TAB [Concomitant]
     Indication: VITAMIN SUPPLEMENTATION
  3. HUMIRA [Suspect]
     Indication: PSORIASIS
     Dates: start: 20091222
  4. COLACE [Concomitant]
     Indication: CONSTIPATION PROPHYLAXIS
  5. IBUPROFEN [Concomitant]
     Indication: PRODUCT USED FOR UNKNOWN INDICATION
  6. DOCUSATE SODIUM [Concomitant]
     Indication: CONSTIPATION PROPHYLAXIS

REACTIONS (1)
  - LOCALISED INFECTION [None]
